FAERS Safety Report 5063653-3 (Version None)
Quarter: 2006Q3

REPORT INFORMATION
  Report Type: 
  Country: None (occurrence: None)
  Receive Date: 20060724
  Receipt Date: 20060630
  Transmission Date: 20061208
  Serious: Yes (Death)
  Sender: FDA-Public Use
  Company Number: HQWYE094218JUL06

PATIENT
  Age: 83 Year
  Sex: Male

DRUGS (8)
  1. ANCARON              (AMIODARONE, TABLET) [Suspect]
     Indication: VENTRICULAR DYSFUNCTION
     Dosage: 400 MG 1X PER 1 DAY ORAL
     Route: 048
     Dates: start: 20060530, end: 20060613
  2. ANCARON              (AMIODARONE, TABLET) [Suspect]
     Indication: VENTRICULAR TACHYCARDIA
     Dosage: 400 MG 1X PER 1 DAY ORAL
     Route: 048
     Dates: start: 20060530, end: 20060613
  3. LASIX [Concomitant]
  4. ALDACTONE [Concomitant]
  5. DIOVAN [Concomitant]
  6. SIGMART (NICORANDIL) [Concomitant]
  7. ISOSORBIDE DINITRATE [Concomitant]
  8. WARFARIN SODIUM [Concomitant]

REACTIONS (9)
  - CARDIAC FAILURE [None]
  - CONGESTIVE CARDIOMYOPATHY [None]
  - DILATATION VENTRICULAR [None]
  - HEPATIC FAILURE [None]
  - HEPATIC ISCHAEMIA [None]
  - HEPATITIS FULMINANT [None]
  - MULTI-ORGAN FAILURE [None]
  - RENAL ISCHAEMIA [None]
  - VENTRICULAR TACHYCARDIA [None]
